FAERS Safety Report 7224178-X (Version None)
Quarter: 2011Q1

REPORT INFORMATION
  Report Type: 
  Country: None (occurrence: None)
  Receive Date: 20110106
  Receipt Date: 20110106
  Transmission Date: 20110831
  Serious: Yes (Other)
  Sender: FDA-Public Use
  Company Number: None

PATIENT
  Age: 60 Year
  Sex: Female
  Weight: 88.4514 kg

DRUGS (1)
  1. DEXILANT [Suspect]
     Indication: DYSPEPSIA

REACTIONS (6)
  - NECK PAIN [None]
  - HEADACHE [None]
  - VOMITING [None]
  - TREMOR [None]
  - CHILLS [None]
  - VISUAL IMPAIRMENT [None]
